FAERS Safety Report 9632645 (Version 6)
Quarter: 2015Q3

REPORT INFORMATION
  Report Type: Report from Study
  Country: MX (occurrence: MX)
  Receive Date: 20131018
  Receipt Date: 20150706
  Transmission Date: 20151125
  Serious: Yes (Other)
  Sender: FDA-Public Use
  Company Number: PHHY2013MX115767

PATIENT
  Age: 78 Year
  Sex: Female
  Weight: 56 kg

DRUGS (15)
  1. GAVINDO [Concomitant]
     Indication: PRODUCT USED FOR UNKNOWN INDICATION
     Route: 065
  2. GALVUS MET [Concomitant]
     Active Substance: METFORMIN HYDROCHLORIDE\VILDAGLIPTIN
     Dosage: 1 AND 1/2 DF (850 MG MET/ 50 MG VILDA), DAILY
     Route: 048
  3. ONBREZ [Suspect]
     Active Substance: INDACATEROL
     Indication: ASTHMA
     Dosage: 1 DF, QD
     Route: 055
     Dates: start: 2011
  4. ESCLEROVITAN E [Concomitant]
     Indication: VITAMIN SUPPLEMENTATION
     Dosage: 1 DF, QD
     Route: 065
     Dates: start: 201405
  5. GALVUS MET [Concomitant]
     Active Substance: METFORMIN HYDROCHLORIDE\VILDAGLIPTIN
     Indication: DIABETES MELLITUS
     Dosage: 1 DF, QD
     Route: 048
     Dates: start: 201211
  6. GALVUS MET [Concomitant]
     Active Substance: METFORMIN HYDROCHLORIDE\VILDAGLIPTIN
     Dosage: 1 DF (850 MG MET/ 50 MG VILDA), DAILY, 6 MONTHS APPROX.
     Route: 048
     Dates: start: 201211
  7. ONBREZ [Suspect]
     Active Substance: INDACATEROL
     Indication: ASPHYXIA
     Dosage: 2 DF, DAILY (4 YEARS AGO)
     Route: 055
  8. PROPAFENONE. [Concomitant]
     Active Substance: PROPAFENONE
     Indication: ARRHYTHMIA
     Route: 065
  9. ONBREZ [Suspect]
     Active Substance: INDACATEROL
     Dosage: 1 DF, DAILY (6 MONTHS APPROX.)
     Route: 055
  10. NORFENON [Concomitant]
     Indication: ARRHYTHMIA
     Dosage: 1 DF, DAILY
     Route: 065
     Dates: start: 201010
  11. ONBREZ [Suspect]
     Active Substance: INDACATEROL
     Dosage: 1 UKN, PRN (AS NEEDED)
     Route: 065
  12. RANITIDINE [Concomitant]
     Active Substance: RANITIDINE\RANITIDINE HYDROCHLORIDE
     Indication: DYSPEPSIA
     Dosage: 1 DF, UNK
     Route: 065
  13. OMEPRAZOLE. [Concomitant]
     Active Substance: OMEPRAZOLE
     Indication: DYSPEPSIA
     Route: 065
  14. GALVUS MET [Concomitant]
     Active Substance: METFORMIN HYDROCHLORIDE\VILDAGLIPTIN
     Dosage: 2 DF(850 MG MET/ 50 MG VILDA), DAILY, 4 YEARS AGO
     Route: 048
  15. ONBREZ [Suspect]
     Active Substance: INDACATEROL
     Indication: COUGH
     Dosage: 1 1/2 DF, DAILY
     Route: 055
     Dates: start: 20120926

REACTIONS (13)
  - Diabetes mellitus inadequate control [Recovered/Resolved]
  - Inappropriate schedule of drug administration [Unknown]
  - Incorrect route of drug administration [Unknown]
  - Osteoporosis [Not Recovered/Not Resolved]
  - Stress [Not Recovered/Not Resolved]
  - Suffocation feeling [Unknown]
  - Diabetes mellitus inadequate control [Unknown]
  - Off label use [Unknown]
  - Choking [Not Recovered/Not Resolved]
  - Blood glucose decreased [Unknown]
  - Blood disorder [Not Recovered/Not Resolved]
  - Blood pressure abnormal [Not Recovered/Not Resolved]
  - Arthralgia [Not Recovered/Not Resolved]

NARRATIVE: CASE EVENT DATE: 20140612
